FAERS Safety Report 13177123 (Version 1)
Quarter: 2017Q1

REPORT INFORMATION
  Report Type: Report from Study
  Country: US (occurrence: US)
  Receive Date: 20170201
  Receipt Date: 20170201
  Transmission Date: 20170428
  Serious: Yes (Hospitalization)
  Sender: FDA-Public Use
  Company Number: US-EXELIXIS-CABO-16007167

PATIENT
  Sex: Male

DRUGS (9)
  1. COMETRIQ [Suspect]
     Active Substance: CABOZANTINIB S-MALATE
     Indication: RENAL CANCER
     Dosage: 60 MG, QD
     Route: 048
     Dates: start: 20160917
  2. LEVOTHYROXINE. [Concomitant]
     Active Substance: LEVOTHYROXINE
  3. ISOSORBIDE. [Concomitant]
     Active Substance: ISOSORBIDE
  4. TRADJENTA [Concomitant]
     Active Substance: LINAGLIPTIN
  5. IRON [Concomitant]
     Active Substance: IRON
  6. METOPROLOL. [Concomitant]
     Active Substance: METOPROLOL
  7. BRILINTA [Concomitant]
     Active Substance: TICAGRELOR
  8. ATORVASTATIN [Concomitant]
     Active Substance: ATORVASTATIN
  9. VITAMIN B12 [Concomitant]
     Active Substance: CYANOCOBALAMIN

REACTIONS (2)
  - Dehydration [Unknown]
  - Off label use [Unknown]
